FAERS Safety Report 22781003 (Version 10)
Quarter: 2025Q1

REPORT INFORMATION
  Report Type: Report from Study
  Country: US (occurrence: US)
  Receive Date: 20230803
  Receipt Date: 20250120
  Transmission Date: 20250409
  Serious: Yes (Hospitalization)
  Sender: TAKEDA
  Company Number: US-TAKEDA-2023TUS075317

PATIENT
  Age: 22 Year
  Sex: Female
  Weight: 52 kg

DRUGS (24)
  1. HUMAN IMMUNOGLOBULIN G [Suspect]
     Active Substance: HUMAN IMMUNOGLOBULIN G
     Indication: Immunodeficiency
     Dosage: 400 MILLIGRAM/KILOGRAM, 1/WEEK
     Dates: start: 20230629
  2. HUMAN IMMUNOGLOBULIN G [Suspect]
     Active Substance: HUMAN IMMUNOGLOBULIN G
     Indication: Autonomic neuropathy
     Dosage: 25 GRAM, 1/WEEK
  3. HUMAN IMMUNOGLOBULIN G [Suspect]
     Active Substance: HUMAN IMMUNOGLOBULIN G
     Dosage: 25 GRAM, Q2WEEKS
  4. ACETAMINOPHEN [Concomitant]
     Active Substance: ACETAMINOPHEN
  5. EPINEPHRINE [Concomitant]
     Active Substance: EPINEPHRINE
  6. HUMALOG [Concomitant]
     Active Substance: INSULIN LISPRO
  7. HEPARIN [Concomitant]
     Active Substance: HEPARIN SODIUM
  8. SODIUM CHLORIDE [Concomitant]
     Active Substance: SODIUM CHLORIDE
  9. GLUCAGON HCL [Concomitant]
  10. LIDOCAINE [Concomitant]
     Active Substance: LIDOCAINE
  11. LISINOPRIL [Concomitant]
     Active Substance: LISINOPRIL
  12. PROMETHAZINE HYDROCHLORIDE [Concomitant]
     Active Substance: PROMETHAZINE HYDROCHLORIDE
  13. DIPHENHYDRAMINE HYDROCHLORIDE [Concomitant]
     Active Substance: DIPHENHYDRAMINE HYDROCHLORIDE
  14. CARVEDILOL [Concomitant]
     Active Substance: CARVEDILOL
  15. KEPPRA [Concomitant]
     Active Substance: LEVETIRACETAM
  16. OMEPRAZOLE [Concomitant]
     Active Substance: OMEPRAZOLE
  17. SODIUM CHLORIDE [Concomitant]
     Active Substance: SODIUM CHLORIDE
  18. PANTOPRAZOLE SODIUM [Concomitant]
     Active Substance: PANTOPRAZOLE SODIUM
  19. LACTULOSE [Concomitant]
     Active Substance: LACTULOSE
  20. ERGOCALCIFEROL [Concomitant]
     Active Substance: ERGOCALCIFEROL
  21. LINZESS [Concomitant]
     Active Substance: LINACLOTIDE
  22. DIPHENHYDRAMINE [Concomitant]
     Active Substance: DIPHENHYDRAMINE
  23. LEVETIRACETAM [Concomitant]
     Active Substance: LEVETIRACETAM
  24. ONDANSETRON HYDROCHLORIDE [Concomitant]
     Active Substance: ONDANSETRON HYDROCHLORIDE

REACTIONS (8)
  - Gastrointestinal disorder [Unknown]
  - Dehydration [Unknown]
  - Urinary tract infection [Unknown]
  - Gastritis [Unknown]
  - Vomiting [Unknown]
  - Product dose omission issue [Unknown]
  - Product use in unapproved indication [Unknown]
  - Hypotension [Unknown]

NARRATIVE: CASE EVENT DATE: 20230629
